FAERS Safety Report 19929948 (Version 1)
Quarter: 2021Q4

REPORT INFORMATION
  Report Type: Spontaneous
  Country: US (occurrence: US)
  Receive Date: 20211007
  Receipt Date: 20211007
  Transmission Date: 20220303
  Serious: No
  Sender: FDA-Public Use
  Company Number: US-BIOGEN-2018BI00631860

PATIENT
  Age: 51 Year
  Sex: Female
  Weight: 81.72 kg

DRUGS (4)
  1. TECFIDERA [Suspect]
     Active Substance: DIMETHYL FUMARATE
     Indication: Multiple sclerosis
     Dosage: STARTING DOSE
     Route: 050
     Dates: start: 20170224
  2. TECFIDERA [Suspect]
     Active Substance: DIMETHYL FUMARATE
     Route: 050
     Dates: start: 20181025
  3. IBUPROFEN [Concomitant]
     Active Substance: IBUPROFEN
     Route: 050
  4. ASPIRIN [Concomitant]
     Active Substance: ASPIRIN
     Route: 050

REACTIONS (2)
  - Laboratory test abnormal [Unknown]
  - White blood cell count decreased [Unknown]

NARRATIVE: CASE EVENT DATE: 20181025
